FAERS Safety Report 24129260 (Version 1)
Quarter: 2024Q3

REPORT INFORMATION
  Report Type: Other
  Country: US (occurrence: US)
  Receive Date: 20240723
  Receipt Date: 20240723
  Transmission Date: 20241017
  Serious: Yes (Other)
  Sender: UROVANT SCIENCES
  Company Number: US-UROVANT SCIENCES GMBH-202407-URV-001096

PATIENT
  Sex: Female
  Weight: 80.272 kg

DRUGS (2)
  1. GEMTESA [Suspect]
     Active Substance: VIBEGRON
     Indication: Hypertonic bladder
     Dosage: 75 MG, QD
     Route: 065
  2. PHENAZOPYRIDINE [Concomitant]
     Active Substance: PHENAZOPYRIDINE
     Indication: Product used for unknown indication
     Dosage: 100 MG, UNK
     Route: 065

REACTIONS (2)
  - Renal failure [Unknown]
  - Oedema [Unknown]
